FAERS Safety Report 10483498 (Version 1)
Quarter: 2014Q3

REPORT INFORMATION
  Report Type: Spontaneous
  Country: PH (occurrence: None)
  Receive Date: 20140929
  Receipt Date: 20140929
  Transmission Date: 20150326
  Serious: Yes (Death)
  Sender: FDA-Public Use
  Company Number: None

PATIENT
  Age: 37 Year
  Sex: Female
  Weight: 69 kg

DRUGS (1)
  1. TERBUTALINE SULFATE. [Suspect]
     Active Substance: TERBUTALINE SULFATE
     Indication: NASOPHARYNGITIS
     Dosage: 12 PILLS?ONCE DAILY?TAKEN BY MOUTH
     Route: 048

REACTIONS (5)
  - Caesarean section [None]
  - Palpitations [None]
  - Foetal death [None]
  - Hyperhidrosis [None]
  - Exposure during pregnancy [None]

NARRATIVE: CASE EVENT DATE: 20140911
